FAERS Safety Report 5492530-9 (Version None)
Quarter: 2007Q4

REPORT INFORMATION
  Report Type: 
  Country: None (occurrence: None)
  Receive Date: 20071022
  Receipt Date: 20071016
  Transmission Date: 20080405
  Serious: Yes (Hospitalization)
  Sender: FDA-Public Use
  Company Number: US-SHR-US-2007-029648

PATIENT
  Age: 43 Year
  Sex: Female

DRUGS (1)
  1. BETASERON [Suspect]
     Dosage: 4 MIU, EVERY 2D
     Route: 058
     Dates: start: 20070724

REACTIONS (3)
  - ASTHMA [None]
  - CONTUSION [None]
  - INFLUENZA [None]
